FAERS Safety Report 5892159-4 (Version None)
Quarter: 2008Q3

REPORT INFORMATION
  Report Type: 
  Country: None (occurrence: None)
  Receive Date: 20080922
  Receipt Date: 20080909
  Transmission Date: 20090109
  Serious: Yes (Other)
  Sender: FDA-Public Use
  Company Number: US-AMGEN-US307197

PATIENT
  Age: 67 Year
  Sex: Male
  Weight: 52 kg

DRUGS (8)
  1. PANITUMUMAB [Suspect]
     Indication: SQUAMOUS CELL CARCINOMA
     Route: 042
     Dates: start: 20080818
  2. CARBOPLATIN [Suspect]
     Route: 042
  3. TAXOL [Suspect]
     Route: 042
  4. FLORINEF [Concomitant]
  5. NYSTATIN [Concomitant]
  6. REGLAN [Concomitant]
  7. ROXICET [Concomitant]
  8. ZOFRAN [Concomitant]

REACTIONS (2)
  - MUCOSAL INFLAMMATION [None]
  - NEUTROPENIA [None]
